FAERS Safety Report 8841126 (Version 1)
Quarter: 2012Q4

REPORT INFORMATION
  Report Type: 
  Country: IT (occurrence: IT)
  Receive Date: 20121015
  Receipt Date: 20121015
  Transmission Date: 20130627
  Serious: Yes (Hospitalization)
  Sender: FDA-Public Use
  Company Number: IT-MYLANLABS-2012S1020772

PATIENT
  Age: 25 Year
  Sex: Male

DRUGS (1)
  1. LEVOFLOXACIN [Suspect]
     Indication: CYSTITIS
     Route: 048
     Dates: start: 20120920, end: 20120920

REACTIONS (3)
  - Dysphonia [Recovered/Resolved]
  - Laryngeal stenosis [Recovered/Resolved]
  - Hypersensitivity [Recovered/Resolved]
